FAERS Safety Report 4459743-6 (Version None)
Quarter: 2004Q3

REPORT INFORMATION
  Report Type: 
  Country: None (occurrence: None)
  Receive Date: 20040928
  Receipt Date: 20030530
  Transmission Date: 20050211
  Serious: No
  Sender: FDA-Public Use
  Company Number: US-BRISTOL-MYERS SQUIBB COMPANY-12289450

PATIENT
  Age: 2 Year
  Sex: Female
  Weight: 13 kg

DRUGS (2)
  1. KENALOG-40 [Suspect]
     Indication: DYSPNOEA
     Dosage: PHYSICIAN REPORED ON FOLLOWUP THAT THE PATIENT RECEIVED IM KENALOG ON MORE THAN ONE OCCASION.
     Route: 030
     Dates: start: 20030102, end: 20030102
  2. KENALOG-40 [Suspect]
     Indication: STATUS ASTHMATICUS
     Dosage: PHYSICIAN REPORED ON FOLLOWUP THAT THE PATIENT RECEIVED IM KENALOG ON MORE THAN ONE OCCASION.
     Route: 030
     Dates: start: 20030102, end: 20030102

REACTIONS (3)
  - ATROPHY [None]
  - FALL [None]
  - SKIN DISCOLOURATION [None]
